FAERS Safety Report 9713371 (Version 2)
Quarter: 2014Q1

REPORT INFORMATION
  Report Type: Spontaneous
  Country: FR (occurrence: FR)
  Receive Date: 20131126
  Receipt Date: 20140122
  Transmission Date: 20141002
  Serious: Yes (Hospitalization, Other)
  Sender: FDA-Public Use
  Company Number: FR-TEVA-445004ISR

PATIENT
  Age: 29 Year
  Sex: Female

DRUGS (3)
  1. COPAXONE [Suspect]
     Indication: MULTIPLE SCLEROSIS
     Dates: start: 201010
  2. INORIAL [Concomitant]
     Indication: ECZEMA
  3. INORIAL [Concomitant]
     Indication: HYPERSENSITIVITY

REACTIONS (5)
  - Paralysis [Recovered/Resolved]
  - Suicide attempt [Unknown]
  - Depression [Recovering/Resolving]
  - Fall [Recovered/Resolved]
  - Speech disorder [Recovered/Resolved]
